FAERS Safety Report 4346369-8 (Version None)
Quarter: 2004Q2

REPORT INFORMATION
  Report Type: 
  Country: None (occurrence: None)
  Receive Date: 20040426
  Receipt Date: 20030131
  Transmission Date: 20050107
  Serious: No
  Sender: FDA-Public Use
  Company Number: US-GLAXOSMITHKLINE-A0394867A

PATIENT
  Sex: Female

DRUGS (4)
  1. ZOFRAN [Suspect]
     Indication: VOMITING
     Dosage: 8MG TWICE PER DAY
     Route: 048
  2. DOXIL [Concomitant]
  3. XANAX [Concomitant]
  4. COZAAR [Concomitant]

REACTIONS (1)
  - BLOOD ALKALINE PHOSPHATASE INCREASED [None]
